FAERS Safety Report 7260239-7 (Version None)
Quarter: 2011Q1

REPORT INFORMATION
  Report Type: 
  Country: None (occurrence: None)
  Receive Date: 20110130
  Receipt Date: 20100909
  Transmission Date: 20110831
  Serious: No
  Sender: FDA-Public Use
  Company Number: US-ABBOTT-10P-163-0669957-00

PATIENT
  Age: 59 Year
  Sex: Male

DRUGS (3)
  1. LOPRESSOR [Concomitant]
     Indication: TACHYCARDIA
     Dates: start: 20060101
  2. HUMIRA [Suspect]
     Indication: PRODUCT USED FOR UNKNOWN INDICATION
     Dates: start: 20080901
  3. NORTRIPTYLINE [Concomitant]
     Indication: MIGRAINE PROPHYLAXIS
     Dosage: 20MG AT NIGHT

REACTIONS (2)
  - HEADACHE [None]
  - MIGRAINE [None]
